FAERS Safety Report 19641974 (Version 2)
Quarter: 2021Q3

REPORT INFORMATION
  Report Type: Report from Study
  Country: BR (occurrence: BR)
  Receive Date: 20210730
  Receipt Date: 20210805
  Transmission Date: 20211014
  Serious: Yes (Death, Hospitalization)
  Sender: FDA-Public Use
  Company Number: BR-JNJFOC-20210740184

PATIENT
  Sex: Male
  Weight: 72 kg

DRUGS (4)
  1. ERDAFITINIB. [Suspect]
     Active Substance: ERDAFITINIB
     Indication: GLIOBLASTOMA
     Dosage: 2 PILLS, THE DRUG WAS TEMPORARY STOPPED ON 19?JUL?2021.
     Route: 048
     Dates: start: 20210702, end: 20210719
  2. DEXAMETHASONE. [Concomitant]
     Active Substance: DEXAMETHASONE
     Indication: OEDEMA
     Route: 048
     Dates: start: 202105
  3. KEPPRA [Concomitant]
     Active Substance: LEVETIRACETAM
     Indication: SEIZURE
     Route: 048
     Dates: start: 202104
  4. RITALIN [Concomitant]
     Active Substance: METHYLPHENIDATE HYDROCHLORIDE
     Indication: SOMNOLENCE
     Route: 048

REACTIONS (2)
  - Pneumonitis [Fatal]
  - Stomatitis [Recovered/Resolved]

NARRATIVE: CASE EVENT DATE: 20210715
